FAERS Safety Report 24560491 (Version 1)
Quarter: 2024Q4

REPORT INFORMATION
  Report Type: Report from Study
  Country: BR (occurrence: BR)
  Receive Date: 20241029
  Receipt Date: 20241029
  Transmission Date: 20250115
  Serious: Yes (Hospitalization)
  Sender: BIOGEN
  Company Number: BR-BIOGEN-2024BI01287913

PATIENT
  Age: 34 Year
  Sex: Female
  Weight: 56 kg

DRUGS (1)
  1. TYSABRI [Suspect]
     Active Substance: NATALIZUMAB
     Indication: Multiple sclerosis
     Route: 050
     Dates: start: 20221229

REACTIONS (9)
  - Meningitis viral [Recovered/Resolved]
  - Bell^s palsy [Not Recovered/Not Resolved]
  - Musculoskeletal disorder [Unknown]
  - Cerebral disorder [Recovered/Resolved]
  - Headache [Recovered/Resolved]
  - Herpes zoster [Recovered/Resolved]
  - Oral mucosal eruption [Recovered/Resolved]
  - Generalised oedema [Recovered/Resolved]
  - General physical health deterioration [Unknown]

NARRATIVE: CASE EVENT DATE: 20240805
